FAERS Safety Report 7330814-X (Version None)
Quarter: 2011Q1

REPORT INFORMATION
  Report Type: 
  Country: None (occurrence: None)
  Receive Date: 20110304
  Receipt Date: 20110228
  Transmission Date: 20110831
  Serious: No
  Sender: FDA-Public Use
  Company Number: US-PFIZER INC-2011044004

PATIENT
  Sex: Female
  Weight: 62 kg

DRUGS (2)
  1. CHANTIX [Suspect]
     Dosage: 1 MG, 2X/DAY
     Dates: start: 20110201, end: 20110228
  2. CHANTIX [Suspect]
     Indication: SMOKING CESSATION THERAPY
     Dosage: 0.5 MG, 1X/DAY
     Route: 048
     Dates: start: 20110221, end: 20110201

REACTIONS (5)
  - CONFUSIONAL STATE [None]
  - ANXIETY [None]
  - IRRITABILITY [None]
  - DISTURBANCE IN ATTENTION [None]
  - ANGER [None]
